FAERS Safety Report 18582702 (Version 2)
Quarter: 2021Q1

REPORT INFORMATION
  Report Type: Report from Study
  Country: None (occurrence: CA)
  Receive Date: 20201205
  Receipt Date: 20210108
  Transmission Date: 20210419
  Serious: No
  Sender: FDA-Public Use
  Company Number: CA-ABBVIE-20K-028-3676641-00

PATIENT
  Age: 28 Year
  Sex: Male

DRUGS (1)
  1. HUMIRA [Suspect]
     Active Substance: ADALIMUMAB
     Indication: CROHN^S DISEASE
     Route: 058
     Dates: start: 20201006

REACTIONS (4)
  - Diarrhoea [Recovering/Resolving]
  - Malaise [Unknown]
  - Gastroenteritis salmonella [Recovered/Resolved]
  - Food contamination [Unknown]

NARRATIVE: CASE EVENT DATE: 2020
